FAERS Safety Report 6084804-8 (Version None)
Quarter: 2009Q1

REPORT INFORMATION
  Report Type: 
  Country: None (occurrence: None)
  Receive Date: 20090218
  Receipt Date: 20090211
  Transmission Date: 20090719
  Serious: Yes (Hospitalization)
  Sender: FDA-Public Use
  Company Number: TAP2009Q00117

PATIENT
  Sex: Female

DRUGS (1)
  1. PREVACID [Suspect]
     Indication: DRUG USE FOR UNKNOWN INDICATION
     Dosage: 30 MG (30 MG, 1 IN 1 D), PER ORAL
     Route: 048

REACTIONS (3)
  - DRUG EFFECT DECREASED [None]
  - MEDICATION RESIDUE [None]
  - METABOLIC ACIDOSIS [None]
